FAERS Safety Report 7780556-1 (Version None)
Quarter: 2011Q3

REPORT INFORMATION
  Report Type: 
  Country: None (occurrence: None)
  Receive Date: 20110927
  Receipt Date: 20110921
  Transmission Date: 20111222
  Serious: Yes (Other)
  Sender: FDA-Public Use
  Company Number: US-CEPHALON-2009006943

PATIENT
  Age: 30 Year
  Sex: Male

DRUGS (2)
  1. TRISENOX [Suspect]
     Indication: ASTROCYTOMA MALIGNANT
     Route: 042
  2. TEMOZOLOMIDE [Concomitant]
     Indication: ASTROCYTOMA MALIGNANT

REACTIONS (1)
  - HEPATOTOXICITY [None]
